FAERS Safety Report 8807993 (Version 2)
Quarter: 2015Q1

REPORT INFORMATION
  Report Type: Report from Study
  Country: US (occurrence: US)
  Receive Date: 20120925
  Receipt Date: 20150320
  Transmission Date: 20150721
  Serious: Yes (Death)
  Sender: FDA-Public Use
  Company Number: US-ROCHE-1123412

PATIENT
  Age: 50 Year
  Sex: Female
  Weight: 55.39 kg

DRUGS (19)
  1. VITAMIN B6 [Concomitant]
     Active Substance: PYRIDOXINE HYDROCHLORIDE
     Route: 065
  2. ARANESP [Concomitant]
     Active Substance: DARBEPOETIN ALFA
     Route: 065
  3. NORMAL SALINE [Concomitant]
     Active Substance: SODIUM CHLORIDE
     Route: 065
  4. DEXAMETHASONE. [Concomitant]
     Active Substance: DEXAMETHASONE
     Route: 065
  5. FOLIC ACID. [Concomitant]
     Active Substance: FOLIC ACID
     Route: 065
  6. ATIVAN [Concomitant]
     Active Substance: LORAZEPAM
     Route: 042
  7. AVASTIN [Suspect]
     Active Substance: BEVACIZUMAB
     Indication: LUNG NEOPLASM MALIGNANT
  8. DECADRON [Concomitant]
     Active Substance: DEXAMETHASONE
     Route: 042
  9. EMEND [Concomitant]
     Active Substance: APREPITANT
     Route: 048
  10. GEMZAR [Concomitant]
     Active Substance: GEMCITABINE HYDROCHLORIDE
     Route: 042
  11. AVASTIN [Suspect]
     Active Substance: BEVACIZUMAB
     Indication: OVARIAN CANCER
     Route: 042
     Dates: start: 20101111
  12. CISPLATIN. [Concomitant]
     Active Substance: CISPLATIN
     Route: 042
  13. ALIMTA [Concomitant]
     Active Substance: PEMETREXED DISODIUM
     Route: 065
  14. NEUPOGEN [Concomitant]
     Active Substance: FILGRASTIM
     Route: 065
  15. EMEND [Concomitant]
     Active Substance: APREPITANT
     Route: 048
  16. DOXIL [Concomitant]
     Active Substance: DOXORUBICIN HYDROCHLORIDE
     Route: 042
  17. ZOFRAN [Concomitant]
     Active Substance: ONDANSETRON HYDROCHLORIDE
     Dosage: P.R.N
     Route: 065
  18. NEULASTA [Concomitant]
     Active Substance: PEGFILGRASTIM
     Route: 065
  19. ALOXI [Concomitant]
     Active Substance: PALONOSETRON HYDROCHLORIDE
     Route: 042

REACTIONS (13)
  - Dizziness [Unknown]
  - Asthenia [Unknown]
  - Epistaxis [Unknown]
  - Neuropathy peripheral [Unknown]
  - Anaemia [Unknown]
  - Hypotension [Unknown]
  - Fatigue [Unknown]
  - Dehydration [Unknown]
  - Stomatitis [Unknown]
  - Abdominal pain [Unknown]
  - Constipation [Unknown]
  - Death [Fatal]
  - Blister [Unknown]

NARRATIVE: CASE EVENT DATE: 20110312
